FAERS Safety Report 13995597 (Version 2)
Quarter: 2017Q3

REPORT INFORMATION
  Report Type: Spontaneous
  Country: US (occurrence: US)
  Receive Date: 20170921
  Receipt Date: 20170922
  Transmission Date: 20171128
  Serious: No
  Sender: FDA-Public Use
  Company Number: US-PFIZER INC-2017404713

PATIENT
  Age: 15 Year
  Sex: Male

DRUGS (4)
  1. MINOXIDIL. [Suspect]
     Active Substance: MINOXIDIL
     Indication: ALOPECIA AREATA
     Dosage: UNK
     Route: 061
  2. ANTHRALIN [Suspect]
     Active Substance: ANTHRALIN
     Indication: ALOPECIA AREATA
     Dosage: UNK
  3. DIPHENYLCYCLOPROPENONE [Suspect]
     Active Substance: DIPHENCYPRONE
     Indication: ALOPECIA AREATA
     Dosage: UNK
  4. SQUARIC ACID [Suspect]
     Active Substance: SQUARIC ACID
     Indication: ALOPECIA AREATA
     Dosage: UNK

REACTIONS (1)
  - Drug ineffective [Unknown]
